FAERS Safety Report 9161830 (Version 3)
Quarter: 2013Q2

REPORT INFORMATION
  Report Type: Spontaneous
  Country: US (occurrence: US)
  Receive Date: 20130314
  Receipt Date: 20130628
  Transmission Date: 20140414
  Serious: No
  Sender: FDA-Public Use
  Company Number: US-BIOGENIDEC-2013BI022928

PATIENT
  Age: 24 Year
  Sex: Female

DRUGS (1)
  1. TYSABRI [Suspect]
     Indication: MULTIPLE SCLEROSIS
     Route: 042
     Dates: start: 20121106, end: 20130307

REACTIONS (8)
  - Optic neuritis [Not Recovered/Not Resolved]
  - Nuclear magnetic resonance imaging abnormal [Unknown]
  - Hypoaesthesia [Unknown]
  - Blindness unilateral [Recovered/Resolved]
  - General symptom [Not Recovered/Not Resolved]
  - Influenza [Recovered/Resolved]
  - Multiple sclerosis relapse [Recovered/Resolved]
  - Drug specific antibody present [Not Recovered/Not Resolved]
